FAERS Safety Report 5526304-7 (Version None)
Quarter: 2007Q4

REPORT INFORMATION
  Report Type: 
  Country: None (occurrence: None)
  Receive Date: 20071121
  Receipt Date: 20071121
  Transmission Date: 20080405
  Serious: No
  Sender: FDA-Public Use
  Company Number: None

PATIENT

DRUGS (1)
  1. CHANTIX [Suspect]
     Indication: SMOKING CESSATION THERAPY
     Dosage: 0.5 MG TWICE DAILY PO
     Route: 048
     Dates: start: 20071114, end: 20071120

REACTIONS (3)
  - ABNORMAL DREAMS [None]
  - FATIGUE [None]
  - INSOMNIA [None]
